FAERS Safety Report 7432246-2 (Version None)
Quarter: 2011Q2

REPORT INFORMATION
  Report Type: 
  Country: None (occurrence: None)
  Receive Date: 20110420
  Receipt Date: 20110420
  Transmission Date: 20111010
  Serious: Yes (Other)
  Sender: FDA-Public Use
  Company Number: None

PATIENT
  Sex: Male
  Weight: 90.7194 kg

DRUGS (2)
  1. ALCOHOL PREP PADS TRIAD [Suspect]
     Indication: HEPATITIS C
     Dosage: SWAB SQ ONCE
     Route: 058
     Dates: start: 20110117, end: 20110117
  2. ALCOHOL PREP PADS TRIAD [Suspect]
     Indication: HEPATITIS C
     Dosage: SWAB SQ ONCE
     Route: 058
     Dates: start: 20110110, end: 20110110

REACTIONS (8)
  - SKIN IRRITATION [None]
  - APPLICATION SITE PAIN [None]
  - SCRATCH [None]
  - RASH ERYTHEMATOUS [None]
  - SCAB [None]
  - RASH VESICULAR [None]
  - RASH GENERALISED [None]
  - RASH PRURITIC [None]
